FAERS Safety Report 24809492 (Version 2)
Quarter: 2025Q3

REPORT INFORMATION
  Report Type: Spontaneous
  Country: BR (occurrence: BR)
  Receive Date: 20250106
  Receipt Date: 20250803
  Transmission Date: 20251020
  Serious: Yes (Other)
  Sender: ALEXION PHARMACEUTICALS
  Company Number: BR-AstraZeneca-CH-00764094A

PATIENT
  Sex: Female

DRUGS (1)
  1. XIGDUO XR [Suspect]
     Active Substance: DAPAGLIFLOZIN PROPANEDIOL\METFORMIN HYDROCHLORIDE
     Dosage: 10/1000MG
     Route: 065

REACTIONS (5)
  - Renal cancer [Unknown]
  - Drug ineffective [Unknown]
  - Blood glucose increased [Unknown]
  - Product residue present [Unknown]
  - Wrong technique in product usage process [Unknown]
